FAERS Safety Report 8615365-4 (Version None)
Quarter: 2012Q3

REPORT INFORMATION
  Report Type: 
  Country: None (occurrence: None)
  Receive Date: 20120823
  Receipt Date: 20120817
  Transmission Date: 20120928
  Serious: Yes (Other)
  Sender: FDA-Public Use
  Company Number: US-BAYER-2012-086431

PATIENT
  Age: 57 Year
  Sex: Male
  Weight: 137 kg

DRUGS (17)
  1. COZAAR [Concomitant]
     Dosage: 50 MG, DAILY
  2. PROTAMINE SULFATE [Concomitant]
     Dosage: UNK
     Dates: start: 20070403, end: 20070403
  3. SOLU-MEDROL [Concomitant]
     Dosage: 1 G,PUMP PRIME
     Dates: start: 20070403, end: 20070403
  4. DOPAMINE HCL [Concomitant]
     Dosage: UNK
     Dates: start: 20070403, end: 20070403
  5. VANCOMYCIN [Concomitant]
     Dosage: 1 G, UNK
  6. DOBUTAMINE [Concomitant]
     Dosage: UNK
     Dates: start: 20070403, end: 20070403
  7. INSULIN [Concomitant]
     Dosage: 20 U, QOD
     Route: 048
  8. ZOCOR [Concomitant]
     Dosage: 20 MG,DAILY
  9. TRASYLOL [Suspect]
     Indication: CORONARY ARTERY BYPASS
     Dosage: 200 CC
     Route: 042
     Dates: start: 20070403, end: 20070403
  10. TRASYLOL [Suspect]
     Indication: CARDIAC ABLATION
  11. AVANDIA [Concomitant]
     Dosage: 4 MG, QD
  12. ISOFLURANE [Concomitant]
     Dosage: UNK
     Dates: start: 20070403, end: 20070403
  13. ETOMIDATE [Concomitant]
     Dosage: UNK
     Dates: start: 20070403, end: 20070403
  14. HEPARIN [Concomitant]
     Dosage: UNK
     Dates: start: 20070403, end: 20070403
  15. PRINIVIL [Concomitant]
     Dosage: UNK
  16. CLONIDINE [Concomitant]
     Dosage: 0.1 MG, DAILY
  17. CONTRAST MEDIA [Concomitant]
     Indication: CATHETERISATION CARDIAC
     Dosage: UNK
     Dates: start: 20070402

REACTIONS (5)
  - ATRIAL FIBRILLATION [None]
  - HYPOTENSION [None]
  - PERICARDIAL EFFUSION [None]
  - PERICARDITIS [None]
  - RENAL FAILURE [None]
